FAERS Safety Report 4441075-3 (Version None)
Quarter: 2004Q3

REPORT INFORMATION
  Report Type: 
  Country: None (occurrence: None)
  Receive Date: 20040827
  Receipt Date: 20040630
  Transmission Date: 20050211
  Serious: Yes (Other)
  Sender: FDA-Public Use
  Company Number: 04-0049SU

PATIENT
  Age: 60 Year
  Sex: Female

DRUGS (1)
  1. SULAR [Suspect]

REACTIONS (1)
  - RASH [None]
